FAERS Safety Report 5877548-6 (Version None)
Quarter: 2008Q3

REPORT INFORMATION
  Report Type: 
  Country: None (occurrence: None)
  Receive Date: 20080911
  Receipt Date: 20080829
  Transmission Date: 20090109
  Serious: Yes (Other)
  Sender: FDA-Public Use
  Company Number: PHHY2008BE19849

PATIENT
  Age: 70 Year
  Sex: Female

DRUGS (2)
  1. DIOVAN [Suspect]
     Indication: HYPERTENSION
     Dosage: 80 MG, UNK
  2. NORTRILEN ^PROMONTA LUNDBECK^ [Concomitant]
     Indication: DEPRESSION

REACTIONS (3)
  - FATIGUE [None]
  - FUNGAL INFECTION [None]
  - SWOLLEN TONGUE [None]
